FAERS Safety Report 6396601-4 (Version None)
Quarter: 2009Q4

REPORT INFORMATION
  Report Type: 
  Country: None (occurrence: None)
  Receive Date: 20091012
  Receipt Date: 20091007
  Transmission Date: 20100525
  Serious: Yes (Life-Threatening)
  Sender: FDA-Public Use
  Company Number: FR-ASTRAZENECA-2009CG00834

PATIENT
  Age: 17717 Day
  Sex: Female

DRUGS (2)
  1. DIPRIVAN [Suspect]
     Indication: INDUCTION OF ANAESTHESIA
     Route: 042
     Dates: start: 20090302, end: 20090302
  2. CELOCURIN [Suspect]
     Indication: INDUCTION OF ANAESTHESIA
     Route: 042
     Dates: start: 20090302, end: 20090302

REACTIONS (7)
  - ATRIAL FLUTTER [None]
  - BRADYCARDIA [None]
  - CIRCULATORY COLLAPSE [None]
  - CYANOSIS [None]
  - GENERALISED ERYTHEMA [None]
  - HYPERSENSITIVITY [None]
  - VENTRICULAR TACHYCARDIA [None]
